FAERS Safety Report 4926904-9 (Version None)
Quarter: 2006Q1

REPORT INFORMATION
  Report Type: 
  Country: None (occurrence: None)
  Receive Date: 20060228
  Receipt Date: 20050906
  Transmission Date: 20060701
  Serious: Yes (Other)
  Sender: FDA-Public Use
  Company Number: S05-USA-04021-01

PATIENT
  Age: 26 Year
  Sex: Male

DRUGS (2)
  1. LAMICTAL [Suspect]
     Indication: BIPOLAR DISORDER
     Dosage: 75MG PER DAY
     Route: 048
     Dates: start: 20050701, end: 20050815
  2. LEXAPRO [Suspect]
     Indication: DEPRESSION
     Dosage: 2.5MG PER DAY
     Route: 048
     Dates: start: 20050815

REACTIONS (2)
  - HEPATIC ENZYME INCREASED [None]
  - NASOPHARYNGITIS [None]
